FAERS Safety Report 8246127 (Version 3)
Quarter: 2013Q3

REPORT INFORMATION
  Report Type: Spontaneous
  Country: US (occurrence: US)
  Receive Date: 20111116
  Receipt Date: 20130916
  Transmission Date: 20140515
  Serious: Yes (Hospitalization)
  Sender: FDA-Public Use
  Company Number: US-BIOGENIDEC-2011BI043038

PATIENT
  Sex: Male

DRUGS (1)
  1. TYSABRI [Suspect]
     Indication: MULTIPLE SCLEROSIS
     Route: 042
     Dates: start: 20091204

REACTIONS (7)
  - Multiple sclerosis relapse [Not Recovered/Not Resolved]
  - Drug ineffective [Unknown]
  - Urinary tract infection [Not Recovered/Not Resolved]
  - Feeling cold [Unknown]
  - Dysstasia [Unknown]
  - General symptom [Recovered/Resolved]
  - Balance disorder [Unknown]
